FAERS Safety Report 10474355 (Version 1)
Quarter: 2014Q3

REPORT INFORMATION
  Report Type: Spontaneous
  Country: US (occurrence: US)
  Receive Date: 20140924
  Receipt Date: 20140924
  Transmission Date: 20150326
  Serious: Yes (Hospitalization, Other)
  Sender: FDA-Public Use
  Company Number: US-GILEAD-2014-0116287

PATIENT
  Age: 50 Year
  Sex: Male

DRUGS (1)
  1. LETAIRIS [Suspect]
     Active Substance: AMBRISENTAN
     Indication: PRODUCT USED FOR UNKNOWN INDICATION
     Dosage: 10 MG, QD
     Route: 065
     Dates: start: 20140718

REACTIONS (17)
  - Syncope [Unknown]
  - Dizziness [Unknown]
  - Oxygen supplementation [Unknown]
  - Lung disorder [Unknown]
  - Chest discomfort [Unknown]
  - Dyspnoea [Unknown]
  - Decreased appetite [Unknown]
  - Oedema [Unknown]
  - Nausea [Unknown]
  - Malaise [Unknown]
  - Palpitations [Unknown]
  - Terminal state [Unknown]
  - Fall [Unknown]
  - Chest pain [Unknown]
  - Ill-defined disorder [Unknown]
  - Cough [Unknown]
  - Fatigue [Unknown]

NARRATIVE: CASE EVENT DATE: 201409
